FAERS Safety Report 9740144 (Version 1)
Quarter: 2013Q4

REPORT INFORMATION
  Report Type: Spontaneous
  Country: US (occurrence: US)
  Receive Date: 20131209
  Receipt Date: 20131209
  Transmission Date: 20140711
  Serious: Yes (Other)
  Sender: FDA-Public Use
  Company Number: US-AMGEN-USASP2013085160

PATIENT
  Age: 62 Year
  Sex: Female

DRUGS (2)
  1. SENSIPAR [Suspect]
     Indication: PRODUCT USED FOR UNKNOWN INDICATION
     Dosage: 60 MG, QD
     Route: 048
  2. RENVELA [Concomitant]

REACTIONS (2)
  - Renal failure [Unknown]
  - Nausea [Not Recovered/Not Resolved]
